FAERS Safety Report 14517503 (Version 5)
Quarter: 2018Q1

REPORT INFORMATION
  Report Type: Spontaneous
  Country: CN (occurrence: CN)
  Receive Date: 20180212
  Receipt Date: 20180307
  Transmission Date: 20180509
  Serious: Yes (Other)
  Sender: FDA-Public Use
  Company Number: PHHY2018CN020975

PATIENT
  Age: 64 Year
  Sex: Male

DRUGS (2)
  1. TEGRETOL [Suspect]
     Active Substance: CARBAMAZEPINE
     Indication: TRIGEMINAL NEURALGIA
     Dosage: (7-8 TABLETS/DAY, 1-2 TABLETS/ 5 HOURS)
     Route: 048
  2. METFORMIN [Suspect]
     Active Substance: METFORMIN HYDROCHLORIDE
     Indication: PRODUCT USED FOR UNKNOWN INDICATION
     Dosage: UNK
     Route: 048

REACTIONS (4)
  - Blood glucose fluctuation [Recovering/Resolving]
  - Acne [Not Recovered/Not Resolved]
  - Diabetes mellitus [Unknown]
  - Inappropriate schedule of drug administration [Unknown]
